FAERS Safety Report 10997027 (Version 2)
Quarter: 2015Q3

REPORT INFORMATION
  Report Type: Spontaneous
  Country: IT (occurrence: IT)
  Receive Date: 20150408
  Receipt Date: 20150910
  Transmission Date: 20151125
  Serious: Yes (Other)
  Sender: FDA-Public Use
  Company Number: IT-TEVA-552684ACC

PATIENT
  Age: 69 Year
  Sex: Female

DRUGS (7)
  1. NORVASC - 5 MG COMPRESSE [Concomitant]
     Indication: HYPERTENSION
     Dosage: 1 DF
     Route: 048
  2. KARVEA - 300 MG COMPRESSE [Concomitant]
     Indication: HYPERTENSION
     Dosage: 1 DF
     Route: 048
  3. DELTACORTENE - 5 MG COMPRESSE [Concomitant]
     Indication: POLYMYALGIA RHEUMATICA
     Dosage: 0.5 DF
     Route: 048
  4. NOVONORM - 2.0 MG COMPRESSE - NOVO NORDISK A/S [Suspect]
     Active Substance: REPAGLINIDE
     Indication: TYPE 2 DIABETES MELLITUS
     Dosage: 1 DF TOTAL
     Route: 048
     Dates: start: 20120208, end: 20120208
  5. GLUCOBAY [Suspect]
     Active Substance: ACARBOSE
     Indication: TYPE 2 DIABETES MELLITUS
     Dosage: 1 DF TOTAL
     Route: 048
     Dates: start: 20120208, end: 20120208
  6. METFORMIN HYDROCHLORIDE. [Suspect]
     Active Substance: METFORMIN HYDROCHLORIDE
     Indication: TYPE 2 DIABETES MELLITUS
     Dosage: 1000 MG TOTAL
     Route: 048
     Dates: start: 20120208, end: 20120208
  7. METHOTREXATE SODIUM. [Concomitant]
     Active Substance: METHOTREXATE SODIUM
     Indication: OSTEOARTHRITIS
     Dosage: 3 DF
     Route: 048

REACTIONS (3)
  - Hypoglycaemia [Recovered/Resolved]
  - Throat irritation [Recovered/Resolved]
  - Paraesthesia [Recovered/Resolved]

NARRATIVE: CASE EVENT DATE: 20120208
